FAERS Safety Report 20835349 (Version 1)
Quarter: 2022Q2

REPORT INFORMATION
  Report Type: Spontaneous
  Country: KE (occurrence: KE)
  Receive Date: 20220516
  Receipt Date: 20220516
  Transmission Date: 20220721
  Serious: Yes (Other)
  Sender: FDA-Public Use
  Company Number: KE-BAYER-2022A036666

PATIENT
  Age: 29 Year
  Sex: Female

DRUGS (1)
  1. LEVONORGESTREL [Suspect]
     Active Substance: LEVONORGESTREL
     Indication: Product used for unknown indication
     Route: 059
     Dates: end: 20220224

REACTIONS (2)
  - Device breakage [Unknown]
  - Complication of device removal [Unknown]

NARRATIVE: CASE EVENT DATE: 20220224
